FAERS Safety Report 24590974 (Version 1)
Quarter: 2024Q4

REPORT INFORMATION
  Report Type: Spontaneous
  Country: CN (occurrence: CN)
  Receive Date: 20241107
  Receipt Date: 20241107
  Transmission Date: 20250115
  Serious: Yes (Other)
  Sender: PFIZER
  Company Number: CN-PFIZER INC-202400293083

PATIENT
  Age: 75 Year
  Sex: Female

DRUGS (3)
  1. INLYTA [Suspect]
     Active Substance: AXITINIB
     Dosage: 10MG/DAY
  2. INLYTA [Suspect]
     Active Substance: AXITINIB
     Dosage: 2MG/DAY
  3. PEMBROLIZUMAB [Suspect]
     Active Substance: PEMBROLIZUMAB

REACTIONS (5)
  - Myocardial injury [Unknown]
  - Hypothyroidism [Unknown]
  - Blood pressure increased [Unknown]
  - Neoplasm progression [Unknown]
  - Proteinuria [Unknown]
